FAERS Safety Report 6329677-0 (Version None)
Quarter: 2009Q3

REPORT INFORMATION
  Report Type: 
  Country: None (occurrence: None)
  Receive Date: 20090826
  Receipt Date: 20090820
  Transmission Date: 20100115
  Serious: Yes (Other)
  Sender: FDA-Public Use
  Company Number: US-SANOFI-SYNTHELABO-A03200903682

PATIENT
  Age: 52 Year
  Sex: Female
  Weight: 71.7 kg

DRUGS (8)
  1. ASPIRIN [Concomitant]
     Indication: DRUG USE FOR UNKNOWN INDICATION
     Route: 048
  2. PLAQUENIL [Suspect]
     Indication: RHEUMATOID ARTHRITIS
     Route: 048
     Dates: start: 20010101
  3. METHOTREXATE [Suspect]
     Indication: RHEUMATOID ARTHRITIS
     Dosage: UNK
     Route: 065
     Dates: start: 20071201
  4. ENBREL [Suspect]
     Indication: RHEUMATOID ARTHRITIS
     Dosage: UNK
     Route: 065
     Dates: start: 20071201, end: 20090701
  5. TOPROL-XL [Concomitant]
     Indication: DRUG USE FOR UNKNOWN INDICATION
     Dosage: UNK
     Route: 048
  6. ZANTAC [Concomitant]
     Indication: DRUG USE FOR UNKNOWN INDICATION
     Route: 048
  7. PLAVIX [Suspect]
     Indication: CORONARY ARTERY OCCLUSION
     Route: 048
     Dates: start: 20090301
  8. PLAVIX [Suspect]
     Indication: CHEST PAIN
     Route: 048
     Dates: start: 20090301

REACTIONS (10)
  - ANGINA PECTORIS [None]
  - ANKLE FRACTURE [None]
  - CARDIAC FAILURE [None]
  - CORONARY ARTERY OCCLUSION [None]
  - FALL [None]
  - FEELING ABNORMAL [None]
  - FOOT FRACTURE [None]
  - GASTROINTESTINAL DISORDER [None]
  - PULMONARY HYPERTENSION [None]
  - ROSACEA [None]
